FAERS Safety Report 10258012 (Version 7)
Quarter: 2016Q4

REPORT INFORMATION
  Report Type: Spontaneous
  Country: US (occurrence: US)
  Receive Date: 20140625
  Receipt Date: 20161004
  Transmission Date: 20170206
  Serious: Yes (Other)
  Sender: FDA-Public Use
  Company Number: US-PFIZER INC-2014171905

PATIENT
  Age: 49 Year
  Sex: Male
  Weight: 117 kg

DRUGS (2)
  1. LYRICA [Suspect]
     Active Substance: PREGABALIN
     Indication: NEUROPATHY PERIPHERAL
     Dosage: 150 MG, 3X/DAY
     Route: 048
     Dates: start: 2012, end: 201406
  2. LYRICA [Suspect]
     Active Substance: PREGABALIN
     Indication: FIBROMYALGIA
     Dosage: 150 MG, UNK
     Route: 048
     Dates: end: 20150305

REACTIONS (16)
  - Thrombosis [Unknown]
  - Post procedural complication [Unknown]
  - Muscle twitching [Unknown]
  - Wound [Unknown]
  - Pain [Unknown]
  - Insomnia [Unknown]
  - Sluggishness [Unknown]
  - Peripheral swelling [Unknown]
  - Burning sensation [Unknown]
  - Mobility decreased [Unknown]
  - Back pain [Unknown]
  - Hypoaesthesia [Unknown]
  - Sciatic nerve neuropathy [Unknown]
  - Blepharospasm [Unknown]
  - Localised infection [Unknown]
  - Diarrhoea [Unknown]

NARRATIVE: CASE EVENT DATE: 201406
